FAERS Safety Report 7772350-2 (Version None)
Quarter: 2011Q3

REPORT INFORMATION
  Report Type: 
  Country: None (occurrence: None)
  Receive Date: 20110922
  Receipt Date: 20100302
  Transmission Date: 20111222
  Serious: No
  Sender: FDA-Public Use
  Company Number: US-ASTRAZENECA-2010SE16019

PATIENT
  Age: 20020 Day
  Sex: Male
  Weight: 102.1 kg

DRUGS (12)
  1. LAMICTAL [Concomitant]
     Dates: start: 20040112
  2. ALLOPURINOL [Concomitant]
     Dates: start: 20100101
  3. TRAZODONE HYDROCHLORIDE [Concomitant]
     Dosage: 50 MG TO 150 MG
     Dates: start: 20020101
  4. LEXAPRO [Concomitant]
  5. SEROQUEL [Suspect]
     Route: 048
     Dates: start: 20100101
  6. RISPERDAL [Concomitant]
     Dosage: 0.5 MG TO 1 MG
     Dates: start: 20021122
  7. DEPAKOTE ER [Concomitant]
     Dates: start: 20021122
  8. SEROQUEL [Suspect]
     Dosage: 25 MG TO 200 MG
     Route: 048
     Dates: start: 20021122
  9. PLAVIX [Concomitant]
     Route: 048
     Dates: start: 20100101
  10. ZOLPIDEM TARTRATE [Concomitant]
     Indication: INSOMNIA
     Route: 048
     Dates: start: 20100101
  11. BUPROPION HCL [Concomitant]
     Dosage: TAKE 1 DAIY FOR 14 DAYS THEN INCREASE TO 1 TWICE DAILY
     Dates: start: 20100101
  12. SIMVASTATIN [Concomitant]
     Route: 048
     Dates: start: 20100101

REACTIONS (1)
  - BURSITIS [None]
